FAERS Safety Report 23088987 (Version 2)
Quarter: 2023Q4

REPORT INFORMATION
  Report Type: Spontaneous
  Country: CA (occurrence: CA)
  Receive Date: 20231020
  Receipt Date: 20231110
  Transmission Date: 20240110
  Serious: Yes (Other)
  Sender: FDA-Public Use
  Company Number: CA-PFIZER INC-PV202300074429

PATIENT
  Age: 88 Year
  Sex: Female

DRUGS (2)
  1. IBRANCE [Suspect]
     Active Substance: PALBOCICLIB
     Indication: Breast cancer metastatic
     Dosage: 125 MG, CYCLIC, DAILY (21 DAYS THEN 7 DAYS OFF)
     Dates: start: 20200206, end: 20230421
  2. LETROZOLE [Concomitant]
     Active Substance: LETROZOLE
     Dosage: UNK

REACTIONS (5)
  - Renal impairment [Unknown]
  - Weight decreased [Unknown]
  - Fatigue [Unknown]
  - Gastrointestinal disorder [Unknown]
  - Decreased appetite [Unknown]
